FAERS Safety Report 10754196 (Version 1)
Quarter: 2015Q1

REPORT INFORMATION
  Report Type: Spontaneous
  Country: US (occurrence: US)
  Receive Date: 20150202
  Receipt Date: 20150202
  Transmission Date: 20150721
  Serious: Yes (Other)
  Sender: FDA-Public Use
  Company Number: US-JNJFOC-20150116496

PATIENT
  Sex: Female
  Weight: 78.47 kg

DRUGS (1)
  1. XARELTO [Suspect]
     Active Substance: RIVAROXABAN
     Indication: DEEP VEIN THROMBOSIS
     Route: 048
     Dates: start: 20141124, end: 2014

REACTIONS (1)
  - Parkinson^s disease [Recovered/Resolved]

NARRATIVE: CASE EVENT DATE: 2014
